FAERS Safety Report 10474713 (Version 2)
Quarter: 2014Q4

REPORT INFORMATION
  Report Type: Spontaneous
  Country: DE (occurrence: DE)
  Receive Date: 20140925
  Receipt Date: 20141119
  Transmission Date: 20150528
  Serious: Yes (Other)
  Sender: FDA-Public Use
  Company Number: DE-AMGEN-DEUSP2014072072

PATIENT
  Age: 68 Year
  Sex: Female

DRUGS (8)
  1. AFINITOR [Concomitant]
     Active Substance: EVEROLIMUS
     Indication: BREAST CANCER
  2. LETROBLOCK [Concomitant]
     Active Substance: LETROZOLE
     Indication: BREAST CANCER METASTATIC
     Dosage: UNK
     Route: 065
     Dates: end: 201404
  3. EXESTAN [Concomitant]
     Indication: BREAST CANCER
  4. TAXOL [Concomitant]
     Active Substance: PACLITAXEL
     Indication: BREAST CANCER
     Dosage: UNK
     Route: 042
     Dates: start: 201408
  5. XGEVA [Suspect]
     Active Substance: DENOSUMAB
     Indication: BREAST CANCER METASTATIC
     Dosage: 1 AMPULA IN EVERY 4 WEEKS
     Route: 058
     Dates: start: 201307, end: 201408
  6. AVASTIN [Concomitant]
     Active Substance: BEVACIZUMAB
     Indication: BREAST CANCER
     Dosage: UNK
     Route: 042
     Dates: start: 201408
  7. AFINITOR [Concomitant]
     Active Substance: EVEROLIMUS
     Indication: METASTASES TO LIVER
     Dosage: UNK
     Route: 048
     Dates: start: 201408, end: 201408
  8. EXESTAN [Concomitant]
     Indication: METASTASES TO LIVER
     Dosage: UNK
     Route: 048
     Dates: start: 201404, end: 201408

REACTIONS (4)
  - Metastases to liver [Unknown]
  - Osteonecrosis of jaw [Recovering/Resolving]
  - Metastases to bone [Unknown]
  - Tooth disorder [Unknown]

NARRATIVE: CASE EVENT DATE: 201307
